FAERS Safety Report 6554388-6 (Version None)
Quarter: 2010Q1

REPORT INFORMATION
  Report Type: 
  Country: None (occurrence: None)
  Receive Date: 20100127
  Receipt Date: 20100115
  Transmission Date: 20100710
  Serious: Yes (Other)
  Sender: FDA-Public Use
  Company Number: AU-GILEAD-2009-0023819

PATIENT
  Age: 10 Year
  Sex: Male

DRUGS (1)
  1. VISTIDE [Suspect]
     Indication: PROPHYLAXIS

REACTIONS (2)
  - BLINDNESS [None]
  - NEURODEGENERATIVE DISORDER [None]
